FAERS Safety Report 19733013 (Version 2)
Quarter: 2021Q4

REPORT INFORMATION
  Report Type: Spontaneous
  Country: US (occurrence: US)
  Receive Date: 20210823
  Receipt Date: 20211117
  Transmission Date: 20220304
  Serious: Yes (Hospitalization, Other)
  Sender: FDA-Public Use
  Company Number: US-MLMSERVICE-20210811-3048099-1

PATIENT

DRUGS (15)
  1. CYCLOPHOSPHAMIDE [Suspect]
     Active Substance: CYCLOPHOSPHAMIDE
     Indication: Adult T-cell lymphoma/leukaemia
     Dosage: 750 MILLIGRAM/SQ. METER, 1 CYCLICAL
     Route: 065
  2. VINCRISTINE [Suspect]
     Active Substance: VINCRISTINE
     Indication: Adult T-cell lymphoma/leukaemia
     Dosage: 1 MILLIGRAM, 1 CYCLICAL (DOSE REDUCED)
     Route: 065
  3. PREDNISONE [Suspect]
     Active Substance: PREDNISONE
     Indication: Adult T-cell lymphoma/leukaemia
     Dosage: 500 MILLIGRAM, 1 CYCLICAL (21-DAY CYCLE PREDNISONE 100MG (FOR 5DAYS)
     Route: 065
  4. DOXORUBICIN [Suspect]
     Active Substance: DOXORUBICIN
     Indication: Adult T-cell lymphoma/leukaemia
     Dosage: UNK
     Route: 065
  5. ZIDOVUDINE [Concomitant]
     Active Substance: ZIDOVUDINE
     Indication: Human T-cell lymphotropic virus type I infection
     Dosage: 250 MILLIGRAM, BID
     Route: 065
  6. ASPARTAME;CHOLESTYRAMINE [Concomitant]
     Indication: Hyperbilirubinaemia
     Dosage: 4 GRAM, QD
     Route: 048
  7. PRAVASTATIN [Concomitant]
     Active Substance: PRAVASTATIN
     Indication: Hypercholesterolaemia
     Dosage: 40 MILLIGRAM, QD
     Route: 065
  8. URSODIOL [Concomitant]
     Active Substance: URSODIOL
     Indication: Hyperbilirubinaemia
     Dosage: 300 MILLIGRAM, QD
     Route: 048
  9. RIFAXIMIN [Concomitant]
     Active Substance: RIFAXIMIN
     Indication: Hepatic encephalopathy
     Dosage: 550 MILLIGRAM, BID (12 HR)
     Route: 048
  10. RIFAXIMIN [Concomitant]
     Active Substance: RIFAXIMIN
     Indication: Asterixis
  11. FINASTERIDE [Concomitant]
     Active Substance: FINASTERIDE
     Indication: Benign prostatic hyperplasia
     Dosage: 5 MILLIGRAM, QD
     Route: 065
  12. LEVOTHYROXINE [Concomitant]
     Active Substance: LEVOTHYROXINE
     Indication: Hypothyroidism
     Dosage: 75 MICROGRAM, QD
     Route: 065
  13. DOXAZOSIN [Concomitant]
     Active Substance: DOXAZOSIN MESYLATE
     Indication: Benign prostatic hyperplasia
     Dosage: 4 MILLIGRAM, QD
     Route: 065
  14. LACTULOSE [Concomitant]
     Active Substance: LACTULOSE
     Indication: Asterixis
     Dosage: 20 GRAM, TID (EVERY 8 HR)
     Route: 048
  15. LACTULOSE [Concomitant]
     Active Substance: LACTULOSE
     Indication: Hepatic encephalopathy

REACTIONS (3)
  - Pancytopenia [Recovering/Resolving]
  - Myelosuppression [Recovering/Resolving]
  - Anaemia [Recovering/Resolving]
